FAERS Safety Report 4952402-2 (Version None)
Quarter: 2006Q1

REPORT INFORMATION
  Report Type: 
  Country: None (occurrence: None)
  Receive Date: 20060320
  Receipt Date: 20060307
  Transmission Date: 20060701
  Serious: Yes (Other)
  Sender: FDA-Public Use
  Company Number: US016646

PATIENT
  Age: 40 Year
  Sex: Female
  Weight: 71.2147 kg

DRUGS (16)
  1. GABITRIL [Suspect]
     Indication: HEADACHE
     Dosage: 2 MG QHS ORAL
     Route: 048
     Dates: start: 20050929, end: 20051008
  2. GABITRIL [Suspect]
     Indication: HEADACHE
     Dosage: 4 MG QD ORAL
     Route: 048
     Dates: start: 20051009
  3. GABITRIL [Suspect]
     Indication: HEADACHE
     Dosage: 4 MG BID ORAL
     Route: 048
     Dates: end: 20051226
  4. BUPROPION HCL [Concomitant]
  5. AMITRIPTYLINE [Concomitant]
  6. METHADONE HCL [Concomitant]
  7. SOMA [Concomitant]
  8. HYDROCHLOROTHIAZIDE [Concomitant]
  9. KLOR-CON [Concomitant]
  10. ZETIA [Concomitant]
  11. MIRALAX [Concomitant]
  12. DURADRIN [Concomitant]
  13. NAPROXEN [Concomitant]
  14. RESTASIS [Concomitant]
  15. HYDROCHLOROQUINE [Concomitant]
  16. LAMICTAL [Concomitant]

REACTIONS (5)
  - CEREBRAL HAEMATOMA [None]
  - FALL [None]
  - GRAND MAL CONVULSION [None]
  - MENTAL STATUS CHANGES [None]
  - SKIN LACERATION [None]
